FAERS Safety Report 8619928-1 (Version None)
Quarter: 2012Q3

REPORT INFORMATION
  Report Type: 
  Country: None (occurrence: None)
  Receive Date: 20120824
  Receipt Date: 20120817
  Transmission Date: 20120928
  Serious: Yes (Hospitalization, Other)
  Sender: FDA-Public Use
  Company Number: BR-ABBOTT-12P-020-0918148-00

PATIENT
  Sex: Female
  Weight: 68 kg

DRUGS (7)
  1. METHOTREXATE [Concomitant]
     Indication: RHEUMATOID ARTHRITIS
     Dosage: TEN TABLETS WEEKLY = 25 MG
     Route: 048
     Dates: start: 20040101
  2. LEFLUNOMIDE [Concomitant]
     Indication: PRODUCT USED FOR UNKNOWN INDICATION
  3. PREDNISONE TAB [Concomitant]
     Indication: MUSCULOSKELETAL PAIN
     Route: 048
     Dates: start: 20040101
  4. ENALAPRIL MALEATE [Concomitant]
     Indication: HYPERTENSION
  5. HUMIRA [Suspect]
     Indication: RHEUMATOID ARTHRITIS
     Route: 058
     Dates: start: 20110608, end: 20111102
  6. PREDNISONE TAB [Concomitant]
     Indication: PAIN
     Dosage: 5 MG EVERY OTHER DAY
     Route: 048
  7. PROPRANOLOL [Concomitant]
     Indication: HYPERTENSION

REACTIONS (7)
  - FURUNCLE [None]
  - ARTERIAL OCCLUSIVE DISEASE [None]
  - DYSPNOEA [None]
  - CORONARY ARTERY INSUFFICIENCY [None]
  - NECROSIS [None]
  - CHEST PAIN [None]
  - FATIGUE [None]
